FAERS Safety Report 19127901 (Version 1)
Quarter: 2021Q2

REPORT INFORMATION
  Report Type: Spontaneous
  Country: US (occurrence: US)
  Receive Date: 20210413
  Receipt Date: 20210413
  Transmission Date: 20210717
  Serious: Yes (Hospitalization)
  Sender: FDA-Public Use
  Company Number: None

PATIENT
  Age: 22 Year
  Sex: Male
  Weight: 95 kg

DRUGS (2)
  1. HYDROCODONE?ACETAMINOPHEN [Suspect]
     Active Substance: ACETAMINOPHEN\HYDROCODONE
     Indication: PROCEDURAL PAIN
     Route: 048
     Dates: start: 20210401, end: 20210402
  2. AMOXICILLIN/CLAVULATNATE [Concomitant]
     Dates: start: 20210401, end: 20210411

REACTIONS (3)
  - Mental status changes [None]
  - Sedation [None]
  - Gait disturbance [None]

NARRATIVE: CASE EVENT DATE: 20210405
